FAERS Safety Report 5194504-4 (Version None)
Quarter: 2006Q4

REPORT INFORMATION
  Report Type: 
  Country: None (occurrence: None)
  Receive Date: 20061222
  Receipt Date: 20061221
  Transmission Date: 20070319
  Serious: Yes (Hospitalization, Other)
  Sender: FDA-Public Use
  Company Number: HQWYE826221DEC06

PATIENT
  Age: 68 Year
  Sex: Male

DRUGS (7)
  1. PANTOPRAZOLE SODIUM [Suspect]
     Dosage: 20 MG 1X PER 1DAY ORAL
     Route: 048
     Dates: end: 20061103
  2. CIPROFLOXACIN HCL [Suspect]
     Dosage: 1 G 1X PER 1 DAY ORAL
     Route: 048
     Dates: start: 20060927, end: 20061103
  3. LASIX [Suspect]
     Dosage: 40 MG 1X PER 1 DAY ORAL
     Route: 048
     Dates: end: 20061103
  4. PRAVASTATIN [Concomitant]
  5. PRAZEPAM [Concomitant]
  6. CORDARONE [Concomitant]
  7. TENORMIN [Concomitant]

REACTIONS (2)
  - NEUTROPENIA [None]
  - THROMBOCYTOPENIA [None]
